FAERS Safety Report 23462271 (Version 4)
Quarter: 2024Q2

REPORT INFORMATION
  Report Type: Report from Study
  Country: US (occurrence: US)
  Receive Date: 20240131
  Receipt Date: 20240506
  Transmission Date: 20240716
  Serious: Yes (Hospitalization, Other)
  Sender: FDA-Public Use
  Company Number: US-TAKEDA-2024TUS008848

PATIENT
  Age: 44 Year
  Sex: Female

DRUGS (17)
  1. PARATHYROID HORMONE [Suspect]
     Active Substance: PARATHYROID HORMONE
     Indication: Hypoparathyroidism
     Dosage: 75 MICROGRAM, QD
     Route: 058
     Dates: start: 20160801, end: 2019
  2. PARATHYROID HORMONE [Suspect]
     Active Substance: PARATHYROID HORMONE
     Indication: Hypoparathyroidism
     Dosage: 75 MICROGRAM, QD
     Route: 058
     Dates: start: 20160801, end: 2019
  3. PARATHYROID HORMONE [Suspect]
     Active Substance: PARATHYROID HORMONE
     Indication: Hypoparathyroidism
     Dosage: 75 MICROGRAM, QD
     Route: 058
     Dates: start: 20160801, end: 2019
  4. PARATHYROID HORMONE [Suspect]
     Active Substance: PARATHYROID HORMONE
     Indication: Post procedural hypoparathyroidism
     Dosage: 50 MICROGRAM, QD
     Route: 050
     Dates: start: 20240401
  5. PARATHYROID HORMONE [Suspect]
     Active Substance: PARATHYROID HORMONE
     Indication: Post procedural hypoparathyroidism
     Dosage: 50 MICROGRAM, QD
     Route: 050
     Dates: start: 20240401
  6. PARATHYROID HORMONE [Suspect]
     Active Substance: PARATHYROID HORMONE
     Indication: Post procedural hypoparathyroidism
     Dosage: 50 MICROGRAM, QD
     Route: 050
     Dates: start: 20240401
  7. PARATHYROID HORMONE [Suspect]
     Active Substance: PARATHYROID HORMONE
     Indication: Hypocalcaemia
     Dosage: 50 MICROGRAM, QD
     Route: 050
  8. PARATHYROID HORMONE [Suspect]
     Active Substance: PARATHYROID HORMONE
     Indication: Hypocalcaemia
     Dosage: 50 MICROGRAM, QD
     Route: 050
  9. PARATHYROID HORMONE [Suspect]
     Active Substance: PARATHYROID HORMONE
     Indication: Hypocalcaemia
     Dosage: 50 MICROGRAM, QD
     Route: 050
  10. CALCIUM [Suspect]
     Active Substance: CALCIUM
     Indication: Post procedural hypoparathyroidism
     Dosage: 3500 MILLIGRAM, QD
     Route: 065
  11. CALCIUM [Suspect]
     Active Substance: CALCIUM
     Indication: Hypocalcaemia
  12. CALCITRIOL [Suspect]
     Active Substance: CALCITRIOL
     Indication: Post procedural hypoparathyroidism
     Dosage: 4 DOSAGE FORM, BID
     Route: 065
  13. CALCITRIOL [Suspect]
     Active Substance: CALCITRIOL
     Indication: Hypocalcaemia
  14. VITAMIN D3 [Suspect]
     Active Substance: CHOLECALCIFEROL
     Indication: Post procedural hypoparathyroidism
     Dosage: 8 DOSAGE FORM, QD
     Route: 065
  15. VITAMIN D3 [Suspect]
     Active Substance: CHOLECALCIFEROL
     Indication: Hypocalcaemia
  16. VITAMIN D2 [Suspect]
     Active Substance: ERGOCALCIFEROL
     Indication: Post procedural hypoparathyroidism
     Dosage: 50000 INTERNATIONAL UNIT, 3/WEEK
     Route: 065
  17. VITAMIN D2 [Suspect]
     Active Substance: ERGOCALCIFEROL
     Indication: Hypocalcaemia

REACTIONS (7)
  - Intestinal obstruction [Recovering/Resolving]
  - Hypocalcaemia [Unknown]
  - Syringe issue [Unknown]
  - Recalled product [Unknown]
  - Contusion [Recovered/Resolved]
  - Pain in extremity [Recovered/Resolved]
  - Multiple use of single-use product [Recovered/Resolved]

NARRATIVE: CASE EVENT DATE: 20160801
